FAERS Safety Report 18977939 (Version 1)
Quarter: 2021Q1

REPORT INFORMATION
  Report Type: Spontaneous
  Country: HU (occurrence: HU)
  Receive Date: 20210307
  Receipt Date: 20210307
  Transmission Date: 20210420
  Serious: Yes (Hospitalization)
  Sender: FDA-Public Use
  Company Number: HU-TEVA-2021-HU-1886535

PATIENT
  Age: 68 Year
  Sex: Male

DRUGS (17)
  1. PANANGIN FORTE [Concomitant]
  2. PACLITAXEL. [Suspect]
     Active Substance: PACLITAXEL
     Indication: PANCREATIC CARCINOMA
     Dosage: 70 MG PER WEEK FOR THREE WEEKS, THEN ONE WEEK BREAK:UNIT DOSE:70MILLIGRAM
     Route: 042
     Dates: start: 20210203, end: 20210203
  3. METHYLPREDNISOLONE. [Concomitant]
     Active Substance: METHYLPREDNISOLONE
     Indication: PREMEDICATION
     Dosage: 80MILLIGRAM
     Route: 042
  4. MEGESTROL [Concomitant]
     Active Substance: MEGESTROL
     Indication: WEIGHT DECREASED
     Dosage: 20ML
     Route: 048
  5. DEXAMETHASONE. [Concomitant]
     Active Substance: DEXAMETHASONE
     Indication: PROPHYLAXIS
     Dosage: 8 MG DAILY FOR TWO DAYS AFTER CHEMOTHERAPY
     Route: 048
  6. GEMCITABINE. [Suspect]
     Active Substance: GEMCITABINE
     Indication: PANCREATIC CARCINOMA
     Dosage: 1400 MG PER WEEK FOR THREE WEEKS, THEN ONE WEEK BREAK:UNIT DOSE:1400MILLLIGRAM
     Route: 042
     Dates: start: 20201125, end: 20210203
  7. HUMULIN M3 [Concomitant]
     Active Substance: INSULIN HUMAN
     Indication: DIABETES MELLITUS
     Dosage: 30IU
     Route: 058
  8. ALOXI [Concomitant]
     Active Substance: PALONOSETRON HYDROCHLORIDE
     Indication: PREMEDICATION
     Dosage: 250MILLIGRAM
     Route: 042
  9. KREON [Concomitant]
     Active Substance: PANCRELIPASE
     Dosage: 25000IU
     Route: 048
  10. LAPIDEN [Concomitant]
     Active Substance: INDAPAMIDE
     Indication: HYPERTENSION
     Dosage: 1.5MILLIGRAM
     Route: 048
  11. CONCOR COR [Concomitant]
     Active Substance: BISOPROLOL FUMARATE
     Indication: HYPERTENSION
  12. TANYDON [Concomitant]
     Indication: HYPERTENSION
     Dosage: 60MILLIGRAM
     Route: 048
  13. ASCORBIC ACID. [Concomitant]
     Active Substance: ASCORBIC ACID
  14. ESOMEPRAZOLE. [Concomitant]
     Active Substance: ESOMEPRAZOLE MAGNESIUM
     Dosage: 40MILLIGRAM
     Route: 048
  15. CLEXANE [Concomitant]
     Active Substance: ENOXAPARIN SODIUM
     Indication: THROMBOSIS PROPHYLAXIS
     Dosage: 4000IU
     Route: 058
  16. CHOLECALCIFEROL [Concomitant]
     Active Substance: CHOLECALCIFEROL
     Dosage: 3000IU
  17. BENFOGAMMA [Concomitant]
     Indication: HYPOAESTHESIA
     Dosage: 300MILLIGRAM
     Route: 048

REACTIONS (4)
  - Asthenia [Recovering/Resolving]
  - Vomiting [Recovering/Resolving]
  - Abdominal pain [Recovering/Resolving]
  - Diarrhoea [Recovering/Resolving]

NARRATIVE: CASE EVENT DATE: 20210203
